FAERS Safety Report 6745842-2 (Version None)
Quarter: 2010Q2

REPORT INFORMATION
  Report Type: 
  Country: None (occurrence: None)
  Receive Date: 20100528
  Receipt Date: 20100520
  Transmission Date: 20101027
  Serious: Yes (Other)
  Sender: FDA-Public Use
  Company Number: US-SANOFI-AVENTIS-2010SA000840

PATIENT
  Sex: Male

DRUGS (9)
  1. SOLOSTAR [Suspect]
     Dates: start: 20091217
  2. SOLOSTAR [Suspect]
  3. SOLOSTAR [Suspect]
  4. SOLOSTAR [Suspect]
  5. SOLOSTAR [Suspect]
  6. SOLOSTAR [Suspect]
  7. SOLOSTAR [Suspect]
  8. LANTUS [Suspect]
  9. LANTUS [Suspect]
     Dosage: DOSE:34 UNIT(S)
     Route: 058
     Dates: start: 20091217

REACTIONS (4)
  - DEVICE MALFUNCTION [None]
  - INJECTION SITE DISCOMFORT [None]
  - INJECTION SITE ERYTHEMA [None]
  - INJECTION SITE HAEMORRHAGE [None]
